FAERS Safety Report 12267493 (Version 3)
Quarter: 2017Q1

REPORT INFORMATION
  Report Type: Spontaneous
  Country: US (occurrence: US)
  Receive Date: 20160414
  Receipt Date: 20170109
  Transmission Date: 20170428
  Serious: Yes (Hospitalization, Other)
  Sender: FDA-Public Use
  Company Number: US-TEVA-652288ACC

PATIENT
  Age: 28 Year
  Sex: Female
  Weight: 40.86 kg

DRUGS (1)
  1. PARAGARD T 380A [Suspect]
     Active Substance: COPPER
     Indication: CONTRACEPTION
     Dates: start: 201501, end: 20160407

REACTIONS (2)
  - Ruptured ectopic pregnancy [Recovering/Resolving]
  - Pregnancy on contraceptive [Unknown]

NARRATIVE: CASE EVENT DATE: 20160415
